FAERS Safety Report 4459734-5 (Version None)
Quarter: 2004Q3

REPORT INFORMATION
  Report Type: 
  Country: None (occurrence: None)
  Receive Date: 20040928
  Receipt Date: 20040921
  Transmission Date: 20050211
  Serious: Yes (Other)
  Sender: FDA-Public Use
  Company Number: PHBS2004BR12603

PATIENT
  Age: 4 Year
  Sex: Female
  Weight: 15 kg

DRUGS (1)
  1. LAMISIL [Suspect]
     Indication: CHILLBLAINS
     Dosage: UNK, QD
     Route: 061

REACTIONS (2)
  - DELIRIUM [None]
  - TACHYCARDIA [None]
